FAERS Safety Report 5257127-4 (Version None)
Quarter: 2007Q1

REPORT INFORMATION
  Report Type: 
  Country: None (occurrence: None)
  Receive Date: 20070301
  Receipt Date: 20070226
  Transmission Date: 20070707
  Serious: Yes (Hospitalization)
  Sender: FDA-Public Use
  Company Number: None

PATIENT
  Age: 25 Year
  Sex: Male

DRUGS (2)
  1. NIFURTIMOX  120MG TABS [Suspect]
     Indication: NEUROBLASTOMA RECURRENT
     Dosage: 20MG/KG/DAY PO DIV TID
  2. CYCLOPHOSPHAMIDE [Suspect]
     Indication: NEUROBLASTOMA
     Dosage: 250MG/M2/DOSE

REACTIONS (1)
  - HAEMATURIA [None]
